FAERS Safety Report 5879875-5 (Version None)
Quarter: 2008Q3

REPORT INFORMATION
  Report Type: 
  Country: None (occurrence: None)
  Receive Date: 20080912
  Receipt Date: 20080902
  Transmission Date: 20090109
  Serious: Yes (Other)
  Sender: FDA-Public Use
  Company Number: AU-ROCHE-584048

PATIENT
  Sex: Female

DRUGS (8)
  1. CALCITRIOL [Suspect]
     Indication: OSTEOPOROSIS
     Route: 048
     Dates: end: 20071025
  2. ATENOLOL [Concomitant]
     Route: 048
  3. ATORVASTATIN [Concomitant]
     Route: 048
  4. BENZHEXOL HYDROCHLORIDE [Concomitant]
     Route: 048
     Dates: end: 20071025
  5. IMIPRAMINE HYDROCHLORIDE [Concomitant]
     Route: 048
     Dates: end: 20071025
  6. OLANZAPINE [Concomitant]
     Route: 048
  7. OMEPRAZOLE [Concomitant]
     Route: 048
  8. ALBUTEROL SPIROS [Concomitant]
     Dosage: REPORTED AS: 4 DOSE UNSPECIFIED DAILY.
     Route: 055

REACTIONS (2)
  - DELIRIUM [None]
  - HYPERCALCAEMIA [None]
